FAERS Safety Report 24013692 (Version 1)
Quarter: 2024Q2

REPORT INFORMATION
  Report Type: Spontaneous
  Country: US (occurrence: US)
  Receive Date: 20240626
  Receipt Date: 20240626
  Transmission Date: 20240716
  Serious: Yes (Hospitalization, Other)
  Sender: FDA-Public Use
  Company Number: US-VANTIVE-2024VAN017787

PATIENT
  Sex: Male
  Weight: 109.5 kg

DRUGS (2)
  1. EXTRANEAL [Suspect]
     Active Substance: CALCIUM CHLORIDE\ICODEXTRIN\MAGNESIUM CHLORIDE\SODIUM CHLORIDE\SODIUM LACTATE
     Dosage: LAST FILL: 2500 ML
     Route: 033
  2. EXTRANEAL [Suspect]
     Active Substance: CALCIUM CHLORIDE\ICODEXTRIN\MAGNESIUM CHLORIDE\SODIUM CHLORIDE\SODIUM LACTATE
     Dosage: LAST FILL: 2500 ML
     Route: 033

REACTIONS (7)
  - Azotaemia [Recovered/Resolved]
  - Confusional state [Recovered/Resolved]
  - Frustration tolerance decreased [Recovered/Resolved]
  - Therapy interrupted [Recovered/Resolved]
  - Anger [Unknown]
  - Treatment noncompliance [Recovered/Resolved]
  - Peritoneal dialysis complication [Recovered/Resolved]
